FAERS Safety Report 4666463-1 (Version None)
Quarter: 2005Q2

REPORT INFORMATION
  Report Type: 
  Country: None (occurrence: None)
  Receive Date: 20050518
  Receipt Date: 20050506
  Transmission Date: 20051028
  Serious: Yes (Other)
  Sender: FDA-Public Use
  Company Number: 2005059013

PATIENT
  Age: 75 Year
  Sex: Male
  Weight: 70.3075 kg

DRUGS (10)
  1. CELEBREX [Suspect]
     Indication: ARTHRITIS
     Dosage: 400 MG (200 MG, 2 IN 1 D), ORAL
     Route: 048
     Dates: start: 20021001
  2. CELEBREX [Suspect]
     Indication: JOINT INJURY
     Dosage: 400 MG (200 MG, 2 IN 1 D), ORAL
     Route: 048
     Dates: start: 20021001
  3. DESLORATADINE (DESLORATADINE) [Concomitant]
  4. ROSUVASTATIN (ROSUVASTATIN) [Concomitant]
  5. LANSOPRAZOLE [Concomitant]
  6. TERAZOSIN HYDROCHLORIDE [Concomitant]
  7. INDAPAMIDE [Concomitant]
  8. BECLOMETHASONE DIPROPIONATE [Concomitant]
  9. LATANOPROST [Concomitant]
  10. LEVOBUNOLOL HYDROCHLORIDE (LEVOBUNOLOL HYDROCHLRIDE) [Concomitant]

REACTIONS (6)
  - ARTHRITIS [None]
  - BODY HEIGHT DECREASED [None]
  - CONDITION AGGRAVATED [None]
  - JOINT INJURY [None]
  - PAIN IN EXTREMITY [None]
  - RENAL CELL CARCINOMA STAGE UNSPECIFIED [None]
